FAERS Safety Report 5448712-5 (Version None)
Quarter: 2007Q3

REPORT INFORMATION
  Report Type: 
  Country: None (occurrence: None)
  Receive Date: 20070911
  Receipt Date: 20070906
  Transmission Date: 20080115
  Serious: Yes (Death, Hospitalization)
  Sender: FDA-Public Use
  Company Number: A0679903A

PATIENT
  Age: 70 Year
  Sex: Male

DRUGS (4)
  1. PARNATE [Suspect]
     Indication: BIPOLAR DISORDER
     Dates: start: 20070725, end: 20070731
  2. MONOCORDIL [Concomitant]
     Dates: start: 20070725, end: 20070731
  3. CLOXAZOLAM [Concomitant]
     Dates: start: 20070725, end: 20070731
  4. NEOZINE [Concomitant]
     Dates: start: 20070725, end: 20070731

REACTIONS (2)
  - DEATH [None]
  - HEADACHE [None]
